FAERS Safety Report 4391179-9 (Version None)
Quarter: 2004Q2

REPORT INFORMATION
  Report Type: 
  Country: None (occurrence: None)
  Receive Date: 20040621
  Receipt Date: 20031203
  Transmission Date: 20050107
  Serious: Yes (Other)
  Sender: FDA-Public Use
  Company Number: USA-2003-0010579

PATIENT
  Age: 37 Year
  Sex: Male
  Weight: 86.2 kg

DRUGS (3)
  1. OXYCONTIN [Suspect]
     Indication: PAIN
     Dosage: SEE TEXT, ORAL
     Route: 048
  2. ATIVAN [Concomitant]
  3. SOMA [Concomitant]

REACTIONS (16)
  - ANGER [None]
  - ANXIETY [None]
  - APATHY [None]
  - BACK INJURY [None]
  - DEPRESSION [None]
  - DRUG ABUSER [None]
  - DRUG DEPENDENCE [None]
  - EMOTIONAL DISTRESS [None]
  - FACTITIOUS DISORDER [None]
  - FATIGUE [None]
  - MUSCLE STRAIN [None]
  - PAIN [None]
  - PAIN EXACERBATED [None]
  - SLEEP DISORDER [None]
  - SOMNOLENCE [None]
  - SUICIDAL IDEATION [None]
